FAERS Safety Report 6188812-8 (Version None)
Quarter: 2009Q2

REPORT INFORMATION
  Report Type: 
  Country: None (occurrence: None)
  Receive Date: 20090511
  Receipt Date: 20090511
  Transmission Date: 20091009
  Serious: Yes (Hospitalization, Other)
  Sender: FDA-Public Use
  Company Number: None

PATIENT
  Age: 32 Year
  Sex: Female
  Weight: 58.9676 kg

DRUGS (1)
  1. EPION HEALING OINTMENT NONE ON THE BOTTLE NONE ON THE BOTTLE [Suspect]
     Indication: LASER THERAPY
     Dosage: NONE INDICATED ON THE BOTTLE NONE INDICATED ON  TOP
     Route: 061
     Dates: start: 20080713, end: 20080713

REACTIONS (4)
  - ACCIDENTAL EXPOSURE [None]
  - EYE PAIN [None]
  - EYE PRURITUS [None]
  - OCULAR DISCOMFORT [None]
